FAERS Safety Report 6688435-8 (Version None)
Quarter: 2010Q2

REPORT INFORMATION
  Report Type: 
  Country: None (occurrence: None)
  Receive Date: 20100413
  Receipt Date: 20100409
  Transmission Date: 20101027
  Serious: Yes (Death)
  Sender: FDA-Public Use
  Company Number: 2010SP020511

PATIENT
  Age: 66 Year
  Sex: Female
  Weight: 59.5 kg

DRUGS (2)
  1. TEMOZOLOMIDE [Suspect]
     Indication: BRAIN NEOPLASM
     Dosage: 120 MG; QD; PO
     Route: 048
     Dates: start: 20090901, end: 20091012
  2. DEXAMETHASONE [Concomitant]

REACTIONS (5)
  - CEREBRAL HAEMORRHAGE [None]
  - FALL [None]
  - NEOPLASM RECURRENCE [None]
  - NEUTROPENIA [None]
  - THROMBOCYTOPENIA [None]
